FAERS Safety Report 18810785 (Version 2)
Quarter: 2021Q1

REPORT INFORMATION
  Report Type: Spontaneous
  Country: PT (occurrence: PT)
  Receive Date: 20210129
  Receipt Date: 20210202
  Transmission Date: 20210419
  Serious: Yes (Death, Other)
  Sender: FDA-Public Use
  Company Number: PT-GILEAD-2021-0514843

PATIENT
  Age: 92 Year
  Sex: Female

DRUGS (12)
  1. VEKLURY [Suspect]
     Active Substance: REMDESIVIR
     Indication: COVID-19 PNEUMONIA
     Dosage: D1 200 MG, D2?D5 100 MG
     Route: 042
     Dates: start: 20210110, end: 20210110
  2. NEBIVOLOL. [Concomitant]
     Active Substance: NEBIVOLOL
     Dosage: 5 MG, QD
     Dates: start: 20210109, end: 20210111
  3. FUROSEMIDE. [Concomitant]
     Active Substance: FUROSEMIDE
     Dosage: 60 MG, QD
     Dates: start: 20210109, end: 20210111
  4. BROMAZEPAM [Concomitant]
     Active Substance: BROMAZEPAM
     Dosage: 1.5 MG, QD
     Dates: start: 20210109, end: 20210112
  5. OMEPRAZOLE. [Concomitant]
     Active Substance: OMEPRAZOLE
     Dosage: 20 MG, QD
     Route: 048
     Dates: start: 20210109, end: 20210121
  6. PARACETAMOL [Concomitant]
     Active Substance: ACETAMINOPHEN
     Dosage: 100 MG AS NECESSARY
     Route: 042
     Dates: start: 20210109, end: 20210112
  7. ENOXAPARIN SODIUM. [Concomitant]
     Active Substance: ENOXAPARIN SODIUM
     Dosage: 80 MG, QD
     Dates: start: 20210109, end: 20210112
  8. VEKLURY [Suspect]
     Active Substance: REMDESIVIR
     Dosage: D1 200 MG, D2?D5 100 MG
     Route: 042
     Dates: start: 20210111, end: 20210111
  9. DIGOXIN. [Concomitant]
     Active Substance: DIGOXIN
     Dosage: 0.12 MG, QD
     Dates: start: 20210109, end: 20210111
  10. PREDNISOLONE. [Concomitant]
     Active Substance: PREDNISOLONE
     Dosage: 2.5 MG, QD
     Dates: start: 20210109, end: 20210112
  11. FOLIC ACID. [Concomitant]
     Active Substance: FOLIC ACID
     Dosage: 5 MG, QD
     Dates: start: 20210109, end: 20210112
  12. CAPTOPRIL. [Concomitant]
     Active Substance: CAPTOPRIL
     Dosage: 25 MG, AS NECESSARY
     Dates: start: 20210109, end: 20210112

REACTIONS (4)
  - Respiratory arrest [Fatal]
  - Bradypnoea [Fatal]
  - Oxygen saturation decreased [Fatal]
  - Renal impairment [Unknown]

NARRATIVE: CASE EVENT DATE: 20210111
